FAERS Safety Report 21228978 (Version 1)
Quarter: 2022Q3

REPORT INFORMATION
  Report Type: Report from Study
  Country: US (occurrence: US)
  Receive Date: 20220818
  Receipt Date: 20220818
  Transmission Date: 20221027
  Serious: Yes (Other)
  Sender: FDA-Public Use
  Company Number: US-ABBVIE-22K-163-4502583-00

PATIENT
  Sex: Female

DRUGS (2)
  1. HUMIRA [Suspect]
     Active Substance: ADALIMUMAB
     Indication: Crohn^s disease
     Route: 058
  2. COVID-19 VACCINE NOS [Concomitant]
     Active Substance: COVID-19 VACCINE NOS
     Indication: COVID-19 immunisation
     Dosage: COVID VACCINE
     Route: 030

REACTIONS (9)
  - Anaphylactic shock [Unknown]
  - Throat tightness [Recovering/Resolving]
  - Dysphonia [Unknown]
  - Pruritus [Unknown]
  - Flushing [Recovering/Resolving]
  - Rash [Recovering/Resolving]
  - Dyspnoea [Recovering/Resolving]
  - Chest discomfort [Unknown]
  - Hypersensitivity [Unknown]
